FAERS Safety Report 5336302-4 (Version None)
Quarter: 2007Q2

REPORT INFORMATION
  Report Type: 
  Country: None (occurrence: None)
  Receive Date: 20070522
  Receipt Date: 20070509
  Transmission Date: 20071010
  Serious: Yes (Death, Life-Threatening, Other)
  Sender: FDA-Public Use
  Company Number: 2007-01237

PATIENT
  Age: 78 Year
  Sex: Male
  Weight: 58 kg

DRUGS (25)
  1. VELCADE [Suspect]
     Indication: MULTIPLE MYELOMA
     Dosage: 2.00 MG
     Dates: start: 20070403, end: 20070413
  2. CIPROFLOXACIN [Concomitant]
  3. TARGOCID [Concomitant]
  4. AKINETON [Concomitant]
  5. DIMENHYDRINATE [Concomitant]
  6. ALLOPURINOL [Concomitant]
  7. PODOMEXEF (CEFPODOXIME PROXETIL) [Concomitant]
  8. OXYCONTIN [Concomitant]
  9. FORTECORTIN [Concomitant]
  10. PANTOZOL (PANTOPRAZOLE SODIUM) [Concomitant]
  11. BACTRIM (SULFAMEHOXAZOLE, TRIMETHOPRIM) [Concomitant]
  12. LORAZEPAM [Concomitant]
  13. AZICLAV /SCH/ (CLAVULANATE POTASSIUM, AMOXICILLIN TRIHYDRATE) [Concomitant]
  14. NORVASC [Concomitant]
  15. HYDROCORTONE (HYDROCORTISONE) [Concomitant]
  16. SUCRALFATE [Concomitant]
  17. CLONAZEPAM [Concomitant]
  18. TAZOBAC (PIPERACILLIN SODIUM, TAZOBACTAM SODIUM) [Concomitant]
  19. PRIMPERAN TAB [Concomitant]
  20. SOLU-CORTEF [Concomitant]
  21. MERONEM (MEROPENEM) [Concomitant]
  22. HYOSCINE HBR HYT [Concomitant]
  23. GARAMYCIN [Concomitant]
  24. DEXAMETHASONE 0.5MG TAB [Concomitant]
  25. CIPROFLOXACIN [Concomitant]

REACTIONS (9)
  - COMA [None]
  - CONFUSIONAL STATE [None]
  - DIZZINESS [None]
  - ESCHERICHIA URINARY TRACT INFECTION [None]
  - GENERAL PHYSICAL HEALTH DETERIORATION [None]
  - MYOCLONUS [None]
  - NEUROLOGICAL SYMPTOM [None]
  - SOMNOLENCE [None]
  - TOXIC INDUCED ENCEPHALOPATHY [None]
